FAERS Safety Report 9721097 (Version 1)
Quarter: 2013Q4

REPORT INFORMATION
  Report Type: Spontaneous
  Country: US (occurrence: US)
  Receive Date: 20131129
  Receipt Date: 20131129
  Transmission Date: 20140711
  Serious: No
  Sender: FDA-Public Use
  Company Number: US-PFIZER INC-2013337879

PATIENT
  Age: 51 Year
  Sex: Female
  Weight: 74.83 kg

DRUGS (2)
  1. ZYVOX [Suspect]
     Indication: URINARY TRACT INFECTION
     Dosage: 600 MG, 2X/DAY
     Route: 048
     Dates: start: 20131104, end: 20131112
  2. ZYVOX [Suspect]
     Indication: CYSTITIS
     Dosage: 600 MG, 3X/DAY
     Dates: start: 201311

REACTIONS (4)
  - Inappropriate schedule of drug administration [Unknown]
  - Paraesthesia [Unknown]
  - Hypoaesthesia [Unknown]
  - Limb discomfort [Unknown]
